FAERS Safety Report 5292920-3 (Version None)
Quarter: 2007Q2

REPORT INFORMATION
  Report Type: 
  Country: None (occurrence: None)
  Receive Date: 20070411
  Receipt Date: 20070327
  Transmission Date: 20071010
  Serious: Yes (Other)
  Sender: FDA-Public Use
  Company Number: US-JNJFOC-20060701413

PATIENT
  Sex: Female

DRUGS (3)
  1. REMICADE [Suspect]
     Indication: CROHN'S DISEASE
     Dosage: RECEIVED A TOTAL OF 2 INFUSIONS ON UNKNOWN DATES
     Route: 042
  2. STEROIDS [Concomitant]
  3. IMMUNOMODULATORS [Concomitant]

REACTIONS (1)
  - HISTOPLASMOSIS DISSEMINATED [None]
